FAERS Safety Report 19541747 (Version 15)
Quarter: 2022Q2

REPORT INFORMATION
  Report Type: Report from Study
  Country: TR (occurrence: TR)
  Receive Date: 20210713
  Receipt Date: 20220419
  Transmission Date: 20220721
  Serious: Yes (Death, Hospitalization, Other)
  Sender: FDA-Public Use
  Company Number: TR-ABBVIE-21K-161-3979032-00

PATIENT
  Age: 71 Year
  Sex: Female
  Weight: 65 kg

DRUGS (5)
  1. CARBIDOPA\LEVODOPA [Suspect]
     Active Substance: CARBIDOPA\LEVODOPA
     Indication: Parkinson^s disease
     Dosage: MORNING DOSE (ML) 3.00 CONTINIOUS DOSE (ML) 2.60 EXTRA DOSE (ML) 1.00
     Route: 050
     Dates: start: 20161219, end: 20210709
  2. CARBIDOPA\LEVODOPA [Suspect]
     Active Substance: CARBIDOPA\LEVODOPA
     Dosage: MORNING DOSE (ML) 5.00 CONTINUOUS DOSE (ML) 2.10 EXTRA DOSE (ML) 1.00
     Route: 050
     Dates: start: 20210916
  3. EXELON [Concomitant]
     Active Substance: RIVASTIGMINE TARTRATE
     Indication: Dementia
     Dosage: RIVASTIGMINE (EXELON PATCH)
     Route: 062
     Dates: start: 20161219
  4. AMANTADINE SULFATE [Concomitant]
     Active Substance: AMANTADINE SULFATE
     Indication: Parkinson^s disease
     Dosage: AMANTADINE SULFATE (PK MERZ)
     Route: 048
     Dates: start: 2016
  5. SEROQUEL [Concomitant]
     Active Substance: QUETIAPINE FUMARATE
     Indication: Depression
     Dosage: QUETIAPINE (SEREQUEL)
     Route: 048
     Dates: start: 2016

REACTIONS (12)
  - Death [Fatal]
  - COVID-19 [Recovered/Resolved]
  - Intensive care [Recovered/Resolved]
  - Oesophageal oedema [Recovered/Resolved]
  - General physical health deterioration [Recovered/Resolved]
  - Hypophagia [Recovered/Resolved]
  - Stoma site erythema [Recovered/Resolved]
  - Stoma site discharge [Recovered/Resolved]
  - Device occlusion [Recovered/Resolved]
  - Stoma site discharge [Recovered/Resolved]
  - Stoma site haemorrhage [Recovered/Resolved]
  - Weight decreased [Recovered/Resolved]

NARRATIVE: CASE EVENT DATE: 20210702
